FAERS Safety Report 7313240-9 (Version None)
Quarter: 2011Q1

REPORT INFORMATION
  Report Type: 
  Country: None (occurrence: None)
  Receive Date: 20110225
  Receipt Date: 20110217
  Transmission Date: 20110831
  Serious: Yes (Other)
  Sender: FDA-Public Use
  Company Number: US-JNJFOC-20100702299

PATIENT
  Sex: Female
  Weight: 147.42 kg

DRUGS (7)
  1. LEVAQUIN [Suspect]
     Indication: UPPER RESPIRATORY TRACT INFECTION
     Route: 048
  2. LEVAQUIN [Suspect]
     Indication: URINARY TRACT INFECTION
     Route: 048
  3. LEVAQUIN [Suspect]
     Indication: CHRONIC SINUSITIS
     Route: 048
  4. PREDNISONE [Suspect]
     Route: 042
  5. LEVAQUIN [Suspect]
     Indication: PNEUMONIA
     Route: 048
  6. PREDNISONE [Suspect]
     Indication: ASTHMA
     Route: 065
  7. PREDNISONE [Suspect]
     Indication: CHRONIC OBSTRUCTIVE PULMONARY DISEASE
     Route: 065

REACTIONS (6)
  - PERIARTHRITIS [None]
  - TENDON DISORDER [None]
  - BURSITIS [None]
  - TENOSYNOVITIS [None]
  - ROTATOR CUFF SYNDROME [None]
  - TENDONITIS [None]
